FAERS Safety Report 8983045 (Version 2)
Quarter: 2013Q1

REPORT INFORMATION
  Report Type: Spontaneous
  Country: GB (occurrence: GB)
  Receive Date: 20121224
  Receipt Date: 20130111
  Transmission Date: 20140127
  Serious: Yes (Death, Hospitalization, Other)
  Sender: FDA-Public Use
  Company Number: GB-ASTELLAS-2012EU010926

PATIENT
  Age: 39 Year
  Sex: Male

DRUGS (8)
  1. PROGRAF [Suspect]
     Indication: RENAL TRANSPLANT
     Dosage: 0.1 MG/KG, BID
     Route: 065
  2. BASILIXIMAB [Concomitant]
     Indication: IMMUNOSUPPRESSION
     Dosage: UNK
     Route: 065
  3. MYCOPHENOLATE MOFETIL [Concomitant]
     Indication: IMMUNOSUPPRESSION
     Dosage: UNK
     Route: 065
  4. PREDNISOLONE [Concomitant]
     Indication: IMMUNOSUPPRESSION
     Dosage: UNK
     Route: 048
  5. LANSOPRAZOLE [Interacting]
  6. ABACAVIR [Concomitant]
     Indication: HIV INFECTION
     Dosage: UNK
     Route: 065
     Dates: start: 1995
  7. NEVIRAPINE [Interacting]
     Indication: HIV INFECTION
     Dosage: UNK
     Route: 065
     Dates: start: 1995
  8. LAMIVUDINE [Concomitant]
     Indication: HIV INFECTION
     Dosage: UNK
     Route: 065
     Dates: start: 1995

REACTIONS (8)
  - Drug interaction [Unknown]
  - Drug interaction [Unknown]
  - Lactic acidosis [Fatal]
  - Hepatic steatosis [Fatal]
  - Immunosuppressant drug level increased [Unknown]
  - Toxicity to various agents [Unknown]
  - Tremor [Unknown]
  - Asthenia [Unknown]
